FAERS Safety Report 9410835 (Version 1)
Quarter: 2013Q3

REPORT INFORMATION
  Report Type: Other
  Country: US (occurrence: US)
  Receive Date: 20130719
  Receipt Date: 20130719
  Transmission Date: 20140515
  Serious: Yes (Other)
  Sender: FDA-Public Use
  Company Number: US-BAUSCH-BL-2013-004238

PATIENT
  Age: 19 Month
  Sex: Female

DRUGS (8)
  1. PHENYLEPHRINE 2.5% [Suspect]
     Indication: OPHTHALMOLOGICAL EXAMINATION
     Dosage: 1 DROP IN LEFT EYE, ONE TIME
     Route: 047
  2. PHENYLEPHRINE 2.5% [Suspect]
     Dosage: 1 DROP IN RIGHT EYE, ONE TIME
     Route: 047
  3. ALBUTEROL [Suspect]
     Indication: BRONCHOSPASM
  4. INTRANASAL OXYMETAZOLINE [Suspect]
     Indication: BLOOD DISORDER
     Dosage: TWO SPRAYS IN RIGHT NOSTRIL
     Route: 045
  5. INTRAVENOUS HYDROCOTISONE [Suspect]
     Indication: IODINE ALLERGY
  6. INTRAVENOUS DIPHENHYDRAMINE [Suspect]
     Indication: IODINE ALLERGY
  7. ASPIRIN [Concomitant]
  8. HEPARIN [Concomitant]

REACTIONS (2)
  - Cerebral vasoconstriction [Recovered/Resolved]
  - Procedural hypertension [Recovered/Resolved]
